FAERS Safety Report 6294605-3 (Version None)
Quarter: 2009Q3

REPORT INFORMATION
  Report Type: 
  Country: None (occurrence: None)
  Receive Date: 20090803
  Receipt Date: 20090702
  Transmission Date: 20100115
  Serious: No
  Sender: FDA-Public Use
  Company Number: US-BAYER-200927133NA

PATIENT
  Age: 38 Year
  Sex: Female
  Weight: 73 kg

DRUGS (3)
  1. ULTRAVIST 300 [Suspect]
     Indication: HAEMATURIA
     Dosage: TOTAL DAILY DOSE: 100  ML
     Dates: start: 20090630, end: 20090630
  2. ALBUTEROL [Concomitant]
  3. ADVAIR HFA [Concomitant]

REACTIONS (3)
  - COUGH [None]
  - EYE IRRITATION [None]
  - EYE SWELLING [None]
